FAERS Safety Report 25994885 (Version 1)
Quarter: 2025Q4

REPORT INFORMATION
  Report Type: Report from Study
  Country: IL (occurrence: IL)
  Receive Date: 20251104
  Receipt Date: 20251104
  Transmission Date: 20260118
  Serious: Yes (Hospitalization)
  Sender: SANOFI AVENTIS
  Company Number: IL-SA-2025SA320904

PATIENT
  Age: 3 Year
  Sex: Male

DRUGS (2)
  1. DUPILUMAB [Suspect]
     Active Substance: DUPILUMAB
     Indication: Dermatitis atopic
     Dosage: 300 MG, Q4W
     Route: 058
     Dates: start: 20250615, end: 20250824
  2. BETA CAROTENE [Concomitant]
     Active Substance: BETA CAROTENE

REACTIONS (4)
  - Skin wrinkling [Recovered/Resolved with Sequelae]
  - Erythema [Recovered/Resolved with Sequelae]
  - Pruritus [Recovered/Resolved with Sequelae]
  - Dysstasia [Recovered/Resolved]

NARRATIVE: CASE EVENT DATE: 20250824
